FAERS Safety Report 16579085 (Version 2)
Quarter: 2019Q3

REPORT INFORMATION
  Report Type: Spontaneous
  Country: FR (occurrence: FR)
  Receive Date: 20190716
  Receipt Date: 20190822
  Transmission Date: 20191004
  Serious: Yes (Other)
  Sender: FDA-Public Use
  Company Number: FR-ASTRAZENECA-2019SF00955

PATIENT
  Age: 958 Month
  Sex: Female
  Weight: 61 kg

DRUGS (4)
  1. IRESSA [Suspect]
     Active Substance: GEFITINIB
     Indication: LUNG CANCER METASTATIC
     Route: 048
     Dates: start: 20190108, end: 20190702
  2. ALPRAZOLAM. [Concomitant]
     Active Substance: ALPRAZOLAM
     Indication: DEPRESSION
     Dates: start: 2016
  3. SOLUPRED [Concomitant]
     Indication: LUNG ADENOCARCINOMA
     Dates: start: 20190108
  4. PAROXETINE. [Concomitant]
     Active Substance: PAROXETINE
     Indication: DEPRESSION
     Dates: start: 2016

REACTIONS (4)
  - Hepatitis [Recovered/Resolved]
  - Asthenia [Not Recovered/Not Resolved]
  - Product storage error [Unknown]
  - Lung carcinoma cell type unspecified recurrent [Not Recovered/Not Resolved]

NARRATIVE: CASE EVENT DATE: 201904
